FAERS Safety Report 7763679 (Version 3)
Quarter: 2013Q2

REPORT INFORMATION
  Report Type: Spontaneous
  Country: US (occurrence: US)
  Receive Date: 20110118
  Receipt Date: 20130403
  Transmission Date: 20140414
  Serious: Yes (Hospitalization, Other)
  Sender: FDA-Public Use
  Company Number: US-BAYER-2011-004806

PATIENT
  Age: 24 Year
  Sex: Female
  Weight: 58.96 kg

DRUGS (7)
  1. OCELLA [Suspect]
     Indication: PREMENSTRUAL SYNDROME
     Dosage: UNK
     Route: 048
     Dates: start: 20081201, end: 20090728
  2. YASMIN [Suspect]
     Indication: PREMENSTRUAL SYNDROME
     Dosage: UNK
     Dates: start: 200404, end: 20081130
  3. TYLENOL [PARACETAMOL] [Concomitant]
  4. IBUPROFEN [Concomitant]
  5. NITROFURANTOIN [Concomitant]
  6. ANZEMET [Concomitant]
     Dosage: 100 MG, UNK
  7. VICODIN [Concomitant]

REACTIONS (6)
  - Gallbladder disorder [None]
  - Pain [None]
  - Injury [None]
  - Emotional distress [None]
  - Cholecystitis chronic [None]
  - Off label use [None]
